FAERS Safety Report 6780121-9 (Version None)
Quarter: 2010Q2

REPORT INFORMATION
  Report Type: 
  Country: None (occurrence: None)
  Receive Date: 20100618
  Receipt Date: 20100610
  Transmission Date: 20101027
  Serious: Yes (Disabling)
  Sender: FDA-Public Use
  Company Number: US-PURDUE-USA-2010-0044504

PATIENT
  Sex: Male

DRUGS (6)
  1. OXYCONTIN [Suspect]
     Indication: PAIN
     Dosage: 20 MG, TID
  2. NEURONTIN [Concomitant]
     Indication: PAIN
     Dosage: 800 MG, TID
  3. ZANAFLEX [Concomitant]
     Indication: PAIN
     Dosage: 4 MG, TID
  4. SAVELLA [Concomitant]
     Indication: PAIN
     Dosage: 50 MG, BID
  5. VICODIN [Concomitant]
     Indication: PAIN
     Dosage: 10 MG, Q4H PRN
  6. SOMA [Concomitant]
     Indication: PAIN
     Dosage: 350 MG, Q4H PRN

REACTIONS (10)
  - ANTINUCLEAR ANTIBODY INCREASED [None]
  - ARTHRALGIA [None]
  - BALANCE DISORDER [None]
  - CRYING [None]
  - DEPRESSED MOOD [None]
  - MOBILITY DECREASED [None]
  - PAIN [None]
  - PAIN IN EXTREMITY [None]
  - PARAESTHESIA [None]
  - RED BLOOD CELL SEDIMENTATION RATE INCREASED [None]
